FAERS Safety Report 5928174-1 (Version None)
Quarter: 2008Q4

REPORT INFORMATION
  Report Type: 
  Country: None (occurrence: None)
  Receive Date: 20081023
  Receipt Date: 20081014
  Transmission Date: 20090506
  Serious: Yes (Other)
  Sender: FDA-Public Use
  Company Number: PHHY2008JP23315

PATIENT
  Age: 64 Year
  Sex: Female

DRUGS (5)
  1. GLEEVEC [Suspect]
     Dosage: 4 COURSES
  2. DASATINIB [Concomitant]
     Dosage: 70 MG, BID
     Route: 048
  3. METHOTREXATE [Concomitant]
     Dosage: 4 COURSES
  4. ARA-C [Concomitant]
     Dosage: 4 COURSES
  5. METHYLPREDNISOLONE 16MG TAB [Concomitant]
     Dosage: 4 COURSES

REACTIONS (4)
  - ABDOMINAL DISCOMFORT [None]
  - BONE MARROW FAILURE [None]
  - MALIGNANT NEOPLASM PROGRESSION [None]
  - TUMOUR LYSIS SYNDROME [None]
